FAERS Safety Report 18283825 (Version 2)
Quarter: 2020Q4

REPORT INFORMATION
  Report Type: Not Available
  Country: US (occurrence: US)
  Receive Date: 20200918
  Receipt Date: 20201013
  Transmission Date: 20210113
  Serious: No
  Sender: FDA-Public Use
  Company Number: US-NEUROCRINE BIOSCIENCES INC.-2020NBI03335

PATIENT
  Age: 27 Year
  Sex: Female

DRUGS (1)
  1. INGREZZA [Suspect]
     Active Substance: VALBENAZINE
     Indication: PRODUCT USED FOR UNKNOWN INDICATION
     Route: 048

REACTIONS (4)
  - Vitreous floaters [Not Recovered/Not Resolved]
  - Micturition disorder [Not Recovered/Not Resolved]
  - Tongue pruritus [Not Recovered/Not Resolved]
  - Headache [Not Recovered/Not Resolved]
